FAERS Safety Report 13226316 (Version 3)
Quarter: 2017Q1

REPORT INFORMATION
  Report Type: Spontaneous
  Country: US (occurrence: US)
  Receive Date: 20170213
  Receipt Date: 20170331
  Transmission Date: 20170428
  Serious: No
  Sender: FDA-Public Use
  Company Number: US-PFIZER INC-2017063692

PATIENT
  Age: 9 Year
  Sex: Male
  Weight: 24 kg

DRUGS (5)
  1. GENOTROPIN [Suspect]
     Active Substance: SOMATROPIN
     Dosage: UNK
  2. ZYRTEC [Concomitant]
     Active Substance: CETIRIZINE HYDROCHLORIDE
     Indication: HYPERSENSITIVITY
     Dosage: 10ML; 1 TEASPOON ONCE A DAY. (5MG OR 10MG DOSE)
     Dates: start: 201609
  3. LORATADINE. [Concomitant]
     Active Substance: LORATADINE
  4. GENOTROPIN [Suspect]
     Active Substance: SOMATROPIN
     Indication: BLOOD GROWTH HORMONE ABNORMAL
     Dosage: 1.3 MG, NIGHTLY SIX DAYS A WEEK, TAKES ON DAY OFF
     Route: 058
     Dates: start: 2016
  5. GENOTROPIN [Suspect]
     Active Substance: SOMATROPIN
     Indication: GROWTH HORMONE DEFICIENCY
     Dosage: 1.4 MG, TAKES NIGHTLY SIX DAYS A WEEK, TAKES ON DAY OFF
     Route: 058
     Dates: start: 20160417

REACTIONS (3)
  - Drug ineffective [Unknown]
  - Wrong technique in product usage process [Recovered/Resolved]
  - Product quality issue [Recovered/Resolved]

NARRATIVE: CASE EVENT DATE: 20170206
